FAERS Safety Report 4663523-6 (Version None)
Quarter: 2005Q2

REPORT INFORMATION
  Report Type: 
  Country: None (occurrence: None)
  Receive Date: 20050517
  Receipt Date: 20041203
  Transmission Date: 20051028
  Serious: Yes (Other)
  Sender: FDA-Public Use
  Company Number: GB-GLAXOSMITHKLINE-B0361153A

PATIENT
  Sex: Female

DRUGS (1)
  1. PAROXETINE HYDROCHLORIDE [Suspect]
     Indication: DEPRESSION
     Dosage: 20MG PER DAY
     Route: 065
     Dates: start: 20000901, end: 20010901

REACTIONS (16)
  - ANXIETY [None]
  - DIZZINESS [None]
  - DRUG INEFFECTIVE [None]
  - DRUG WITHDRAWAL SYNDROME [None]
  - GAIT DISTURBANCE [None]
  - HYPOAESTHESIA [None]
  - LABYRINTHITIS [None]
  - NEUROLOGICAL SYMPTOM [None]
  - NIGHT SWEATS [None]
  - NYSTAGMUS [None]
  - PARAESTHESIA [None]
  - SENSORY DISTURBANCE [None]
  - SYNCOPE [None]
  - VERTIGO [None]
  - VESTIBULAR DISORDER [None]
  - WEIGHT INCREASED [None]
